FAERS Safety Report 6292679-7 (Version None)
Quarter: 2009Q3

REPORT INFORMATION
  Report Type: 
  Country: None (occurrence: None)
  Receive Date: 20090729
  Receipt Date: 20090714
  Transmission Date: 20100115
  Serious: Yes (Hospitalization, Other)
  Sender: FDA-Public Use
  Company Number: 2009S1012580

PATIENT
  Sex: Male

DRUGS (7)
  1. VALPROATE SODIUM [Suspect]
     Indication: DRUG USE FOR UNKNOWN INDICATION
  2. CLOZARIL [Suspect]
     Indication: SCHIZOPHRENIA, PARANOID TYPE
     Dosage: 25 MG;TWICE A DAY; ORAL
     Route: 048
     Dates: start: 20060810, end: 20090206
  3. CLOZARIL [Suspect]
     Indication: SCHIZOPHRENIA, PARANOID TYPE
     Dosage: 25 MG;TWICE A DAY; ORAL
     Route: 048
     Dates: start: 20090309
  4. FLUVOXAMINE MALEATE [Suspect]
     Indication: OBSESSIVE-COMPULSIVE DISORDER
     Dosage: ORAL
     Route: 048
     Dates: start: 20081101, end: 20090201
  5. FYBOGEL (PLANTAGO OVATA) [Concomitant]
  6. MOVICOL (NULYTELY /01053601/) [Concomitant]
  7. OMEPRAZOLE [Concomitant]

REACTIONS (10)
  - ANTIPSYCHOTIC DRUG LEVEL INCREASED [None]
  - BLOOD SODIUM INCREASED [None]
  - DIZZINESS [None]
  - DRUG INTERACTION [None]
  - FACE OEDEMA [None]
  - HAEMORRHOIDS [None]
  - PSYCHOTIC DISORDER [None]
  - RENAL IMPAIRMENT [None]
  - SOMNOLENCE [None]
  - TREATMENT NONCOMPLIANCE [None]
